FAERS Safety Report 22610496 (Version 1)
Quarter: 2023Q2

REPORT INFORMATION
  Report Type: Spontaneous
  Country: SE (occurrence: SE)
  Receive Date: 20230616
  Receipt Date: 20230616
  Transmission Date: 20230722
  Serious: Yes (Life-Threatening)
  Sender: FDA-Public Use
  Company Number: None

PATIENT
  Age: 68 Year
  Sex: Male
  Weight: 79 kg

DRUGS (1)
  1. VALACYCLOVIR HYDROCHLORIDE [Suspect]
     Active Substance: VALACYCLOVIR HYDROCHLORIDE
     Indication: Oral herpes
     Dosage: 2000 MG GIVEN IN TOTAL OVER 2 DAYS?FOR ACTIVE INGREDIENT VALACICLOVIR THE STRENGTH IS 500 MILLIGRAM
     Route: 065
     Dates: start: 20230419, end: 20230420

REACTIONS (3)
  - Neurotoxicity [Recovered/Resolved]
  - Antiviral drug level above therapeutic [Recovered/Resolved]
  - Circumstance or information capable of leading to medication error [Recovered/Resolved]

NARRATIVE: CASE EVENT DATE: 20230421
